FAERS Safety Report 22372337 (Version 1)
Quarter: 2023Q2

REPORT INFORMATION
  Report Type: Spontaneous
  Country: US (occurrence: US)
  Receive Date: 20230526
  Receipt Date: 20230526
  Transmission Date: 20230722
  Serious: Yes (Other)
  Sender: FDA-Public Use
  Company Number: US-INSUD PHARMA-2305US03224

PATIENT

DRUGS (1)
  1. ACYCLOVIR [Suspect]
     Active Substance: ACYCLOVIR
     Indication: Evidence based treatment
     Dosage: 800 MILLIGRAM, Q8H
     Route: 042

REACTIONS (1)
  - Acute kidney injury [Recovered/Resolved]
